FAERS Safety Report 16314629 (Version 1)
Quarter: 2019Q2

REPORT INFORMATION
  Report Type: Spontaneous
  Country: IT (occurrence: IT)
  Receive Date: 20190515
  Receipt Date: 20190515
  Transmission Date: 20190711
  Serious: Yes (Other)
  Sender: FDA-Public Use
  Company Number: IT-SA-2019SA129796

PATIENT
  Age: 79 Year
  Sex: Female

DRUGS (2)
  1. RANIBIZUMAB. [Suspect]
     Active Substance: RANIBIZUMAB
     Dosage: UNK, UNK
  2. AFLIBERCEPT [Suspect]
     Active Substance: AFLIBERCEPT
     Dosage: INJECTION, UNK, UNK

REACTIONS (2)
  - Pseudocyst [Unknown]
  - Retinal neovascularisation [Unknown]
